FAERS Safety Report 6618599-3 (Version None)
Quarter: 2010Q1

REPORT INFORMATION
  Report Type: 
  Country: None (occurrence: None)
  Receive Date: 20100308
  Receipt Date: 20100305
  Transmission Date: 20100710
  Serious: Yes (Hospitalization, Disabling)
  Sender: FDA-Public Use
  Company Number: FR-WYE-G01441108

PATIENT
  Sex: Male

DRUGS (1)
  1. RHINADVIL [Suspect]
     Indication: NASOPHARYNGITIS
     Route: 048
     Dates: start: 20080101, end: 20080101

REACTIONS (2)
  - CEREBRAL HAEMATOMA [None]
  - HEMIPLEGIA [None]
